FAERS Safety Report 7765839-3 (Version None)
Quarter: 2011Q3

REPORT INFORMATION
  Report Type: 
  Country: None (occurrence: None)
  Receive Date: 20110921
  Receipt Date: 20110912
  Transmission Date: 20111222
  Serious: Yes (Hospitalization, Other)
  Sender: FDA-Public Use
  Company Number: JP-CEPHALON-2011000660

PATIENT
  Sex: Female
  Weight: 83 kg

DRUGS (12)
  1. TREANDA [Suspect]
     Indication: NON-HODGKIN'S LYMPHOMA RECURRENT
     Route: 042
     Dates: start: 20110113, end: 20110114
  2. FAMOTIDINE [Concomitant]
     Dates: start: 20110111
  3. AMLODIPINE BESYLATE [Concomitant]
     Dates: start: 20090610
  4. TREANDA [Suspect]
     Route: 042
     Dates: start: 20110203
  5. DEQUALINIUM CHLORIDE [Concomitant]
     Dates: start: 20110210, end: 20110509
  6. SENNOSIDE A AND B [Concomitant]
     Dates: start: 20110413, end: 20110516
  7. ALLOPURINOL [Concomitant]
     Dates: start: 20090110
  8. SULFAMETHOXAZOLE AND TRIMETHOPRIM [Suspect]
     Route: 048
     Dates: start: 20110111
  9. PALONOSETRON [Concomitant]
     Route: 042
     Dates: start: 20110113, end: 20110512
  10. POTASSIUM CITRATE W/SODIUM CITRATE [Concomitant]
     Dates: start: 20110111
  11. PRAVASTATIN SODIUM [Concomitant]
     Dates: start: 20110111
  12. HYDROCORTISONE SODIUM SUCCINATE [Concomitant]
     Dates: start: 20110224, end: 20110513

REACTIONS (8)
  - RASH [None]
  - NASOPHARYNGITIS [None]
  - PYREXIA [None]
  - LYMPHOCYTE COUNT DECREASED [None]
  - VOMITING [None]
  - PANCYTOPENIA [None]
  - C-REACTIVE PROTEIN INCREASED [None]
  - NAUSEA [None]
